FAERS Safety Report 8031143-1 (Version None)
Quarter: 2012Q1

REPORT INFORMATION
  Report Type: 
  Country: None (occurrence: None)
  Receive Date: 20120109
  Receipt Date: 20111230
  Transmission Date: 20120608
  Serious: Yes (Life-Threatening, Hospitalization, Other)
  Sender: FDA-Public Use
  Company Number: US-ACTELION-A-US2011-57328

PATIENT

DRUGS (3)
  1. CIPROFLOXACIN [Suspect]
     Indication: DIVERTICULITIS
     Dosage: UNK
     Dates: start: 20111024, end: 20111101
  2. BUMEX [Suspect]
     Dosage: UNK
     Dates: start: 20040901, end: 20111101
  3. EPOPROSTENOL SODIUM [Suspect]
     Indication: PULMONARY ARTERIAL HYPERTENSION
     Dosage: 38 NG/KG, PER MIN
     Route: 042
     Dates: start: 20110301

REACTIONS (4)
  - RENAL FAILURE [None]
  - HYPERSENSITIVITY [None]
  - DIVERTICULITIS [None]
  - PAIN IN EXTREMITY [None]
